FAERS Safety Report 6656303-3 (Version None)
Quarter: 2010Q1

REPORT INFORMATION
  Report Type: 
  Country: None (occurrence: None)
  Receive Date: 20100326
  Receipt Date: 20100326
  Transmission Date: 20100710
  Serious: Yes (Other)
  Sender: FDA-Public Use
  Company Number: None

PATIENT
  Sex: Male
  Weight: 79.3795 kg

DRUGS (1)
  1. CRESTOR [Suspect]
     Indication: LOW DENSITY LIPOPROTEIN
     Dosage: 1 TABLET 1 PER DAY PO
     Route: 048
     Dates: start: 20100324, end: 20100324

REACTIONS (3)
  - HEADACHE [None]
  - MUSCLE SPASMS [None]
  - OROPHARYNGEAL PAIN [None]
